FAERS Safety Report 9789428 (Version 1)
Quarter: 2013Q4

REPORT INFORMATION
  Report Type: Spontaneous
  Country: NL (occurrence: NL)
  Receive Date: 20131231
  Receipt Date: 20131231
  Transmission Date: 20140711
  Serious: Yes (Other)
  Sender: FDA-Public Use
  Company Number: NL-AMGEN-NLDSP2013090689

PATIENT
  Age: 61 Year
  Sex: Female

DRUGS (2)
  1. XGEVA [Suspect]
     Indication: PRODUCT USED FOR UNKNOWN INDICATION
     Dosage: 120 UNK, Q4WK
     Route: 058
     Dates: start: 20131112
  2. XGEVA [Suspect]
     Dosage: UNK
     Route: 058

REACTIONS (3)
  - Dental fistula [Unknown]
  - Dental caries [Unknown]
  - Tooth disorder [Unknown]
